FAERS Safety Report 17847023 (Version 3)
Quarter: 2020Q4

REPORT INFORMATION
  Report Type: Spontaneous
  Country: US (occurrence: US)
  Receive Date: 20200601
  Receipt Date: 20201218
  Transmission Date: 20210113
  Serious: Yes (Hospitalization, Other)
  Sender: FDA-Public Use
  Company Number: US-PFIZER INC-2020211874

PATIENT
  Age: 66 Year
  Sex: Male

DRUGS (1)
  1. XELJANZ [Suspect]
     Active Substance: TOFACITINIB CITRATE
     Indication: RHEUMATOID ARTHRITIS
     Dosage: 5 MG, 2X/DAY
     Route: 048
     Dates: start: 20191023

REACTIONS (15)
  - Malaise [Unknown]
  - Pain [Unknown]
  - Pulmonary oedema [Not Recovered/Not Resolved]
  - Musculoskeletal discomfort [Unknown]
  - Limb discomfort [Unknown]
  - Oxygen saturation decreased [Unknown]
  - Dyskinesia [Unknown]
  - Tremor [Unknown]
  - Eye movement disorder [Unknown]
  - Limb injury [Unknown]
  - Therapeutic product effect decreased [Unknown]
  - Tendon rupture [Unknown]
  - Ageusia [Unknown]
  - Condition aggravated [Unknown]
  - Fall [Unknown]

NARRATIVE: CASE EVENT DATE: 202012
